FAERS Safety Report 8440726-6 (Version None)
Quarter: 2012Q2

REPORT INFORMATION
  Report Type: 
  Country: None (occurrence: None)
  Receive Date: 20120615
  Receipt Date: 20120612
  Transmission Date: 20120825
  Serious: Yes (Other)
  Sender: FDA-Public Use
  Company Number: US-JNJFOC-20120606241

PATIENT
  Sex: Female
  Weight: 70.31 kg

DRUGS (3)
  1. SIMPONI [Suspect]
     Indication: RHEUMATOID ARTHRITIS
     Route: 058
     Dates: start: 20100101
  2. PAXIL [Suspect]
     Indication: DEPRESSION
     Route: 048
     Dates: end: 20120401
  3. PRILOSEC [Concomitant]
     Indication: GASTROOESOPHAGEAL REFLUX DISEASE
     Route: 048

REACTIONS (6)
  - IRRITABLE BOWEL SYNDROME [None]
  - DYSPEPSIA [None]
  - INJECTION SITE PAIN [None]
  - DEVICE MALFUNCTION [None]
  - CONVULSION [None]
  - BRADYPHRENIA [None]
